FAERS Safety Report 12549815 (Version 1)
Quarter: 2016Q3

REPORT INFORMATION
  Report Type: Spontaneous
  Country: US (occurrence: US)
  Receive Date: 20160712
  Receipt Date: 20160712
  Transmission Date: 20161109
  Serious: Yes (Other)
  Sender: FDA-Public Use
  Company Number: US-BAYER-2016-128117

PATIENT
  Age: 83 Year
  Sex: Female
  Weight: 52.15 kg

DRUGS (5)
  1. MAGNESIUM [Concomitant]
     Active Substance: MAGNESIUM
     Dosage: UNK UNK, ONCE
     Dates: start: 201606
  2. CALCIUM [Concomitant]
     Active Substance: CALCIUM
     Dosage: 3 DF, QD
     Dates: start: 201606
  3. CALCIUM [Concomitant]
     Active Substance: CALCIUM
     Dosage: 4 DF, QD
  4. MIRALAX [Suspect]
     Active Substance: POLYETHYLENE GLYCOL 3350
     Indication: CONSTIPATION PROPHYLAXIS
     Dosage: UNK, BID
     Route: 048
     Dates: start: 20160624
  5. MAGNESIUM [Concomitant]
     Active Substance: MAGNESIUM
     Dosage: UNK, PRN

REACTIONS (4)
  - Product use issue [None]
  - Drug ineffective [None]
  - Constipation [None]
  - Enuresis [Recovered/Resolved]

NARRATIVE: CASE EVENT DATE: 201606
